FAERS Safety Report 8719852 (Version 2)
Quarter: 2012Q4

REPORT INFORMATION
  Report Type: Report from Study
  Country: JP (occurrence: JP)
  Receive Date: 20120813
  Receipt Date: 20121227
  Transmission Date: 20130627
  Serious: Yes (Other)
  Sender: FDA-Public Use
  Company Number: JP-VERTEX PHARMACEUTICALS INC.-AE-2012-011830

PATIENT
  Age: 46 Year
  Sex: Male

DRUGS (11)
  1. VX-950 (TELAPREVIR) [Suspect]
     Indication: CHRONIC HEPATITIS C
     Dosage: 2250 mg, qd
     Route: 048
     Dates: start: 20120508, end: 20120801
  2. REBETOL [Suspect]
     Indication: CHRONIC HEPATITIS C
     Dosage: 1000 mg, qd
     Route: 048
     Dates: start: 20120508, end: 20120611
  3. REBETOL [Suspect]
     Dosage: 800 mg, qd
     Route: 048
     Dates: start: 20120612
  4. PEGINTRON [Suspect]
     Indication: CHRONIC HEPATITIS C
     Dosage: 1.5 ?g/kg, qw
     Route: 058
     Dates: start: 20120508, end: 20120717
  5. PEGINTRON [Suspect]
     Dosage: 1.3 ?g/kg, qw
     Route: 058
     Dates: start: 20120725
  6. OMERAP [Concomitant]
     Dosage: 20 mg, qd
     Route: 048
     Dates: end: 20120611
  7. CALONAL [Concomitant]
     Dosage: 1200 mg, qd
     Route: 048
     Dates: start: 20120508, end: 20120604
  8. OMEPRAL /00661201/ [Concomitant]
     Dosage: 10 mg, UNK
     Route: 048
     Dates: start: 20120612
  9. FEBURIC [Concomitant]
     Dosage: 10 mg, qd
     Route: 048
  10. ANTEBATE [Concomitant]
     Dosage: UNK
     Route: 061
  11. NORVASC [Concomitant]
     Dosage: 10 mg, qd
     Route: 048

REACTIONS (1)
  - Neutrophil count decreased [Recovered/Resolved]
